FAERS Safety Report 4743639-6 (Version None)
Quarter: 2005Q3

REPORT INFORMATION
  Report Type: 
  Country: None (occurrence: None)
  Receive Date: 20050812
  Receipt Date: 20050803
  Transmission Date: 20060218
  Serious: Yes (Hospitalization)
  Sender: FDA-Public Use
  Company Number: GB-BRISTOL-MYERS SQUIBB COMPANY-13064936

PATIENT

DRUGS (4)
  1. REYATAZ [Suspect]
     Route: 048
     Dates: start: 20050627
  2. VIDEX [Suspect]
     Route: 048
     Dates: start: 20050627
  3. RITONAVIR [Concomitant]
     Dates: start: 20050627
  4. ABACAVIR [Concomitant]
     Dates: start: 20050627

REACTIONS (1)
  - RENAL FAILURE ACUTE [None]
